FAERS Safety Report 8771181 (Version 3)
Quarter: 2014Q1

REPORT INFORMATION
  Report Type: Spontaneous
  Country: JP (occurrence: JP)
  Receive Date: 20120906
  Receipt Date: 20140201
  Transmission Date: 20141002
  Serious: Yes (Death)
  Sender: FDA-Public Use
  Company Number: JP-ROCHE-1113001

PATIENT
  Sex: Male
  Weight: 48 kg

DRUGS (2)
  1. ACTEMRA [Suspect]
     Indication: JUVENILE IDIOPATHIC ARTHRITIS
     Dosage: DOSAGE IS UNCERTAIN
     Route: 041
     Dates: start: 20120323
  2. METHOTREXATE [Concomitant]
     Dosage: DOSAGE IS UNCERTAIN
     Route: 065

REACTIONS (3)
  - Completed suicide [Fatal]
  - Schizophrenia [Unknown]
  - Off label use [Unknown]
